FAERS Safety Report 5585041-3 (Version None)
Quarter: 2008Q1

REPORT INFORMATION
  Report Type: 
  Country: None (occurrence: None)
  Receive Date: 20080109
  Receipt Date: 20080104
  Transmission Date: 20080703
  Serious: Yes (Hospitalization, Other)
  Sender: FDA-Public Use
  Company Number: GB-JNJFOC-20080100562

PATIENT
  Age: 18 Month
  Sex: Male

DRUGS (2)
  1. TOPAMAX [Suspect]
     Indication: EPILEPSY
     Route: 065
  2. UNSPECIFIED MEDICATION [Concomitant]
     Route: 065

REACTIONS (2)
  - HOSPITALISATION [None]
  - PYREXIA [None]
